FAERS Safety Report 18651710 (Version 4)
Quarter: 2021Q4

REPORT INFORMATION
  Report Type: Report from Study
  Country: US (occurrence: US)
  Receive Date: 20201222
  Receipt Date: 20211217
  Transmission Date: 20220303
  Serious: Yes (Other)
  Sender: FDA-Public Use
  Company Number: NVSC2020US336746

PATIENT
  Sex: Female

DRUGS (1)
  1. GLEEVEC [Suspect]
     Active Substance: IMATINIB MESYLATE
     Indication: Product used for unknown indication
     Dosage: UNK
     Route: 065

REACTIONS (7)
  - Leukaemia [Unknown]
  - Pelvic fracture [Unknown]
  - Limb injury [Unknown]
  - Nausea [Unknown]
  - Lower limb fracture [Unknown]
  - Upper limb fracture [Unknown]
  - Wrong technique in product usage process [Unknown]
